FAERS Safety Report 4546051-8 (Version None)
Quarter: 2005Q1

REPORT INFORMATION
  Report Type: 
  Country: None (occurrence: None)
  Receive Date: 20050103
  Receipt Date: 20041222
  Transmission Date: 20050727
  Serious: No
  Sender: FDA-Public Use
  Company Number: 04H-163-0284855-00

PATIENT
  Sex: Male
  Weight: 1.1 kg

DRUGS (1)
  1. TPN ELECTROLYTES IN PLASTIC CONTAINER [Suspect]
     Dosage: 39.6 ML/HR, CONTINUOUS INFUSION, INTRAVENOUS
     Route: 042
     Dates: start: 20041213, end: 20041213

REACTIONS (9)
  - ACIDOSIS [None]
  - ANURIA [None]
  - BLOOD PH DECREASED [None]
  - BLOOD PRESSURE ABNORMAL [None]
  - MEDICATION ERROR [None]
  - NEONATAL DISORDER [None]
  - OVERDOSE [None]
  - RENAL DISORDER [None]
  - RESPIRATORY DISORDER [None]
